FAERS Safety Report 11529257 (Version 1)
Quarter: 2015Q3

REPORT INFORMATION
  Report Type: Spontaneous
  Country: US (occurrence: None)
  Receive Date: 20150918
  Receipt Date: 20150918
  Transmission Date: 20151125
  Serious: No
  Sender: FDA-Public Use
  Company Number: None

PATIENT
  Age: 55 Year
  Sex: Female
  Weight: 63.5 kg

DRUGS (1)
  1. MONISTAT 7 [Suspect]
     Active Substance: MICONAZOLE NITRATE
     Indication: FUNGAL INFECTION
     Dates: start: 20150914, end: 20150914

REACTIONS (3)
  - Pain [None]
  - Nausea [None]
  - Burning sensation [None]

NARRATIVE: CASE EVENT DATE: 20150914
